FAERS Safety Report 15664627 (Version 1)
Quarter: 2018Q4

REPORT INFORMATION
  Report Type: Spontaneous
  Country: IT (occurrence: IT)
  Receive Date: 20181128
  Receipt Date: 20181128
  Transmission Date: 20190205
  Serious: Yes (Hospitalization)
  Sender: FDA-Public Use
  Company Number: IT-HIKMA PHARMACEUTICALS USA INC.-IT-H14001-18-08522

PATIENT
  Age: 58 Year
  Sex: Male

DRUGS (1)
  1. FENITOIN HIKMA [Suspect]
     Active Substance: PHENYTOIN
     Indication: ENCEPHALITIS
     Dosage: IN TOTAL
     Route: 042
     Dates: start: 20181109, end: 20181110

REACTIONS (3)
  - Depressed level of consciousness [Recovering/Resolving]
  - Medication error [Recovering/Resolving]
  - Hypotension [Recovering/Resolving]

NARRATIVE: CASE EVENT DATE: 20181110
